FAERS Safety Report 8912158 (Version 1)
Quarter: 2012Q4

REPORT INFORMATION
  Report Type: 
  Country: IL (occurrence: IL)
  Receive Date: 20121116
  Receipt Date: 20121116
  Transmission Date: 20130627
  Serious: Yes (Congenital Anomaly)
  Sender: FDA-Public Use
  Company Number: IL-009507513-1211ISR004484

PATIENT

DRUGS (1)
  1. RIZATRIPTAN BENZOATE [Suspect]
     Indication: MIGRAINE
     Dosage: UNK, qd
     Route: 064
     Dates: start: 20121006, end: 2012

REACTIONS (3)
  - Foetal malformation [Unknown]
  - Foetal exposure during pregnancy [Unknown]
  - Maternal drugs affecting foetus [None]
